FAERS Safety Report 13784381 (Version 2)
Quarter: 2017Q3

REPORT INFORMATION
  Report Type: Spontaneous
  Country: US (occurrence: US)
  Receive Date: 20170724
  Receipt Date: 20170807
  Transmission Date: 20171127
  Serious: No
  Sender: FDA-Public Use
  Company Number: US-009507513-1707USA006636

PATIENT
  Sex: Female

DRUGS (3)
  1. NEXPLANON [Suspect]
     Active Substance: ETONOGESTREL
     Dosage: 1 DF, UNK
     Route: 059
     Dates: start: 201702, end: 20170404
  2. NEXPLANON [Suspect]
     Active Substance: ETONOGESTREL
     Dosage: 1 DF, UNK
     Route: 059
     Dates: start: 20170704
  3. NORPLANT [Concomitant]
     Active Substance: LEVONORGESTREL

REACTIONS (6)
  - Implant site infection [Recovered/Resolved]
  - Device expulsion [Recovered/Resolved]
  - Implant site abscess [Recovered/Resolved]
  - Purulent discharge [Recovered/Resolved]
  - Implant site swelling [Recovered/Resolved]
  - Skin injury [Recovered/Resolved]

NARRATIVE: CASE EVENT DATE: 20170321
